FAERS Safety Report 25045136 (Version 2)
Quarter: 2025Q2

REPORT INFORMATION
  Report Type: Report from Study
  Country: AU (occurrence: AU)
  Receive Date: 20250306
  Receipt Date: 20250403
  Transmission Date: 20250717
  Serious: Yes (Other)
  Sender: AMGEN
  Company Number: AU-BEH-2025197421

PATIENT
  Age: 34 Year
  Sex: Male

DRUGS (3)
  1. AVACOPAN [Suspect]
     Active Substance: AVACOPAN
     Indication: Anti-neutrophil cytoplasmic antibody positive vasculitis
     Route: 065
     Dates: start: 202310
  2. RITUXIMAB [Concomitant]
     Active Substance: RITUXIMAB
     Route: 065
  3. BACTRIM [Concomitant]
     Active Substance: SULFAMETHOXAZOLE\TRIMETHOPRIM
     Route: 065

REACTIONS (4)
  - Pulmonary alveolar haemorrhage [Recovered/Resolved]
  - Haemoglobin decreased [Recovered/Resolved]
  - Antineutrophil cytoplasmic antibody increased [Recovered/Resolved]
  - Condition aggravated [Recovered/Resolved]

NARRATIVE: CASE EVENT DATE: 20241001
